FAERS Safety Report 7818169-5 (Version None)
Quarter: 2011Q4

REPORT INFORMATION
  Report Type: 
  Country: None (occurrence: None)
  Receive Date: 20111017
  Receipt Date: 20111010
  Transmission Date: 20120403
  Serious: Yes (Congenital Anomaly, Other)
  Sender: FDA-Public Use
  Company Number: DE-ABBOTT-11P-062-0860501-00

PATIENT
  Sex: Female

DRUGS (2)
  1. LAMOTRIGINE [Suspect]
     Indication: MATERNAL EXPOSURE DURING PREGNANCY
     Route: 064
  2. VALPROIC ACID [Suspect]
     Indication: MATERNAL EXPOSURE DURING PREGNANCY
     Route: 064

REACTIONS (6)
  - URINARY TRACT MALFORMATION [None]
  - MATERNAL EXPOSURE DURING PREGNANCY [None]
  - URINARY TRACT DISORDER [None]
  - SMALL FOR DATES BABY [None]
  - PYELOCALIECTASIS [None]
  - FOETAL GROWTH RESTRICTION [None]
